FAERS Safety Report 20278521 (Version 1)
Quarter: 2022Q1

REPORT INFORMATION
  Report Type: Report from Study
  Country: BR (occurrence: BR)
  Receive Date: 20220103
  Receipt Date: 20220103
  Transmission Date: 20220423
  Serious: Yes (Other)
  Sender: FDA-Public Use
  Company Number: BR-NOVARTISPH-NVSC2021BR299618

PATIENT
  Sex: Female

DRUGS (1)
  1. AMLODIPINE\VALSARTAN [Suspect]
     Active Substance: AMLODIPINE\VALSARTAN
     Indication: Product used for unknown indication
     Dosage: 160/5, (STARTED LONG TIME AGO AT CONSTANT USE)
     Route: 065

REACTIONS (3)
  - Blindness [Unknown]
  - Macular degeneration [Unknown]
  - Hypoacusis [Unknown]
